FAERS Safety Report 4550342-4 (Version None)
Quarter: 2004Q4

REPORT INFORMATION
  Report Type: 
  Country: None (occurrence: None)
  Receive Date: 20041227
  Receipt Date: 20041117
  Transmission Date: 20050328
  Serious: No
  Sender: FDA-Public Use
  Company Number: 04P-163-0280773-00

PATIENT
  Age: 60 Year
  Sex: Female
  Weight: 90.7194 kg

DRUGS (15)
  1. HUMIRA [Suspect]
     Indication: RHEUMATOID ARTHRITIS
     Dosage: 40 MG, 1 IN 2 WK, SUBCUTANEOUS
     Route: 058
     Dates: start: 20041025
  2. METHADONE HCL [Concomitant]
  3. GABAPENTIN [Concomitant]
  4. PREDNISONE [Concomitant]
  5. BENICAR [Concomitant]
  6. CALCIUM WITH VITAMIN D [Concomitant]
  7. CERTAGEN [Concomitant]
  8. DOCUSATE SODIUM [Concomitant]
  9. POYCARBOPHIL CALCIUM [Concomitant]
  10. FUROSEMIDE [Concomitant]
  11. LEXAPRO [Concomitant]
  12. MAGNESIUM OXIDE [Concomitant]
  13. NICOTINIC ACID [Concomitant]
  14. POTASSIUM [Concomitant]
  15. CETIRIZINE HCL [Concomitant]

REACTIONS (1)
  - DRUG INEFFECTIVE [None]
